FAERS Safety Report 6263604-X (Version None)
Quarter: 2009Q3

REPORT INFORMATION
  Report Type: 
  Country: None (occurrence: None)
  Receive Date: 20090710
  Receipt Date: 20090529
  Transmission Date: 20100115
  Serious: No
  Sender: FDA-Public Use
  Company Number: A0787391A

PATIENT
  Age: 70 Year
  Sex: Female

DRUGS (4)
  1. TYKERB [Suspect]
     Dosage: 2TAB TWICE PER DAY
     Route: 048
     Dates: start: 20090522
  2. XELODA [Concomitant]
  3. BEVACIZUMAB [Concomitant]
  4. ZOMETA [Concomitant]

REACTIONS (4)
  - DYSPNOEA [None]
  - FEELING ABNORMAL [None]
  - GASTRIC DISORDER [None]
  - NAUSEA [None]
